FAERS Safety Report 25331390 (Version 3)
Quarter: 2025Q2

REPORT INFORMATION
  Report Type: Spontaneous
  Country: JP (occurrence: JP)
  Receive Date: 20250519
  Receipt Date: 20250523
  Transmission Date: 20250717
  Serious: Yes (Hospitalization)
  Sender: EISAI
  Company Number: JP-Eisai-202501844_LEN-RCC_P_1

PATIENT
  Sex: Female

DRUGS (2)
  1. LENVIMA [Suspect]
     Active Substance: LENVATINIB
     Indication: Renal cell carcinoma
     Dosage: DOSE AND FREQUENCY WERE UNKNOWN
     Dates: start: 202501, end: 202505
  2. KEYTRUDA [Concomitant]
     Active Substance: PEMBROLIZUMAB
     Indication: Renal cell carcinoma
     Route: 041
     Dates: start: 202501

REACTIONS (1)
  - Pulmonary toxicity [Not Recovered/Not Resolved]

NARRATIVE: CASE EVENT DATE: 20250501
